FAERS Safety Report 12503475 (Version 1)
Quarter: 2016Q2

REPORT INFORMATION
  Report Type: Spontaneous
  Country: US (occurrence: US)
  Receive Date: 20160628
  Receipt Date: 20160628
  Transmission Date: 20160815
  Serious: No
  Sender: FDA-Public Use
  Company Number: US-PFIZER INC-2016282028

PATIENT
  Age: 65 Year
  Sex: Male
  Weight: 69.4 kg

DRUGS (4)
  1. LYRICA [Suspect]
     Active Substance: PREGABALIN
     Indication: FIBROMYALGIA
     Dosage: 50 MG, 2X/DAY
     Route: 048
  2. LYRICA [Suspect]
     Active Substance: PREGABALIN
     Dosage: 150 MG IN THE MORNING AND 150 MG IN THE AFTERNOON
     Route: 048
  3. METHADONE [Concomitant]
     Active Substance: METHADONE HYDROCHLORIDE
     Indication: RHEUMATOID ARTHRITIS
     Dosage: 10 MG, 1X/DAY
  4. LYRICA [Suspect]
     Active Substance: PREGABALIN
     Dosage: 75 MG IN THE MORNING AND 75 MG IN THE AFTERNOON
     Route: 048

REACTIONS (4)
  - Drug withdrawal syndrome [Recovered/Resolved]
  - Fibromyalgia [Unknown]
  - Drug ineffective [Unknown]
  - Condition aggravated [Unknown]
